FAERS Safety Report 8058162-3 (Version None)
Quarter: 2012Q1

REPORT INFORMATION
  Report Type: 
  Country: None (occurrence: None)
  Receive Date: 20120120
  Receipt Date: 20120106
  Transmission Date: 20120608
  Serious: Yes (Other)
  Sender: FDA-Public Use
  Company Number: CA-JNJFOC-20120106858

PATIENT
  Sex: Male
  Weight: 120 kg

DRUGS (1)
  1. REMICADE [Suspect]
     Indication: CROHN'S DISEASE
     Route: 042
     Dates: start: 20090416

REACTIONS (2)
  - ARTHRALGIA [None]
  - DIARRHOEA HAEMORRHAGIC [None]
